FAERS Safety Report 25552874 (Version 2)
Quarter: 2025Q3

REPORT INFORMATION
  Report Type: Spontaneous
  Country: EU (occurrence: EU)
  Receive Date: 20250715
  Receipt Date: 20250815
  Transmission Date: 20251021
  Serious: No
  Sender: IDORSIA PHARMACEUTICALS
  Company Number: EU-IDORSIA-011078-2025-DE

PATIENT
  Sex: Male

DRUGS (2)
  1. QUVIVIQ [Interacting]
     Active Substance: DARIDOREXANT
     Indication: Product used for unknown indication
     Route: 048
  2. TADALAFIL [Interacting]
     Active Substance: TADALAFIL
     Indication: Product used for unknown indication
     Route: 065

REACTIONS (5)
  - Dysarthria [Unknown]
  - Fatigue [Unknown]
  - Drug interaction [Unknown]
  - Restlessness [Unknown]
  - Drug ineffective [Unknown]

NARRATIVE: CASE EVENT DATE: 20250706
